FAERS Safety Report 22912656 (Version 5)
Quarter: 2023Q4

REPORT INFORMATION
  Report Type: Report from Study
  Country: CH (occurrence: CH)
  Receive Date: 20230906
  Receipt Date: 20231026
  Transmission Date: 20240110
  Serious: Yes (Hospitalization)
  Sender: FDA-Public Use
  Company Number: CH-ABBVIE-5395007

PATIENT
  Sex: Male

DRUGS (5)
  1. CARBIDOPA\LEVODOPA [Suspect]
     Active Substance: CARBIDOPA\LEVODOPA
     Indication: Parkinson^s disease
     Dosage: MD: 6.0ML, CRD: 2.8ML, ED: 2.7 ML?FREQUENCY TEXT: 16H THERAPY
     Route: 050
     Dates: start: 20221028, end: 20230908
  2. CARBIDOPA\LEVODOPA [Suspect]
     Active Substance: CARBIDOPA\LEVODOPA
     Route: 050
     Dates: start: 20130117
  3. CARBIDOPA\LEVODOPA [Suspect]
     Active Substance: CARBIDOPA\LEVODOPA
     Dosage: MD: 6.0ML, CRD: 2.6ML/H, ED: 2.7 ML
     Route: 050
     Dates: start: 20230908, end: 20231005
  4. CARBIDOPA\LEVODOPA [Suspect]
     Active Substance: CARBIDOPA\LEVODOPA
     Dosage: MD: 6.0ML, CRD: 2.6ML/H, ED: 0.0 ML?FREQUENCY TEXT: 16H THERAPY
     Route: 050
     Dates: start: 20231005, end: 20231018
  5. CARBIDOPA\LEVODOPA [Suspect]
     Active Substance: CARBIDOPA\LEVODOPA
     Dosage: MD: 6.0ML, CRD: 2.6ML/H, ED: 2.7 ML?FREQUENCY TEXT: 16H THERAPY
     Route: 050
     Dates: start: 20231018

REACTIONS (7)
  - Aggression [Not Recovered/Not Resolved]
  - Somnolence [Not Recovered/Not Resolved]
  - Dementia [Not Recovered/Not Resolved]
  - Device loosening [Recovered/Resolved]
  - Pneumonia [Not Recovered/Not Resolved]
  - Device issue [Recovered/Resolved]
  - Device leakage [Recovered/Resolved]

NARRATIVE: CASE EVENT DATE: 20230101
